FAERS Safety Report 7679860-7 (Version None)
Quarter: 2011Q3

REPORT INFORMATION
  Report Type: 
  Country: None (occurrence: None)
  Receive Date: 20110812
  Receipt Date: 20110808
  Transmission Date: 20111222
  Serious: Yes (Death, Other)
  Sender: FDA-Public Use
  Company Number: FR-PFIZER INC-2011175894

PATIENT
  Age: 23 Year
  Sex: Male

DRUGS (3)
  1. GEMTUZUMAB OZOGAMICIN [Suspect]
  2. CYCLOPHOSPHAMIDE [Suspect]
     Route: 042
  3. BUSULFAN [Suspect]
     Dosage: 6MG/ML
     Route: 042

REACTIONS (2)
  - HAEMATEMESIS [None]
  - VENOOCCLUSIVE LIVER DISEASE [None]
